FAERS Safety Report 17623311 (Version 4)
Quarter: 2022Q3

REPORT INFORMATION
  Report Type: Spontaneous
  Country: CN (occurrence: CN)
  Receive Date: 20200403
  Receipt Date: 20220901
  Transmission Date: 20221027
  Serious: Yes (Other)
  Sender: FDA-Public Use
  Company Number: None

PATIENT
  Age: 57 Year
  Sex: Female
  Weight: 70 kg

DRUGS (2)
  1. BRINZOLAMIDE\TIMOLOL MALEATE [Suspect]
     Active Substance: BRINZOLAMIDE\TIMOLOL MALEATE
     Indication: Ocular hypertension
     Dosage: 1 DRP, BID (ROUTE: MUCOSAL DRUG DELIVEY)
     Route: 065
     Dates: start: 20200318, end: 20200318
  2. TRAVATAN [Concomitant]
     Active Substance: TRAVOPROST
     Indication: Ocular hypertension
     Dosage: 1 DRP, BID (ROUTE: MUCOSAL DRUG DELIVERY)
     Route: 065
     Dates: start: 20200318, end: 20200318

REACTIONS (4)
  - Lenticular opacities [Not Recovered/Not Resolved]
  - Oedema [Recovering/Resolving]
  - Eye disorder [Recovering/Resolving]
  - Conjunctival hyperaemia [Recovering/Resolving]

NARRATIVE: CASE EVENT DATE: 20200318
